FAERS Safety Report 10556241 (Version 1)
Quarter: 2014Q4

REPORT INFORMATION
  Report Type: Spontaneous
  Country: US (occurrence: US)
  Receive Date: 20141031
  Receipt Date: 20141031
  Transmission Date: 20150529
  Serious: Yes (Hospitalization)
  Sender: FDA-Public Use
  Company Number: US-UNITED THERAPEUTICS-UNT-2014-009995

PATIENT
  Age: 62 Year
  Sex: Female
  Weight: 54.88 kg

DRUGS (1)
  1. REMODULIN [Suspect]
     Active Substance: TREPROSTINIL
     Indication: PULMONARY HYPERTENSION
     Dosage: 0.06125 ?G/KG, CONTINUING
     Route: 058
     Dates: start: 20121106

REACTIONS (2)
  - Hypotension [Unknown]
  - Vision blurred [Unknown]

NARRATIVE: CASE EVENT DATE: 201410
